FAERS Safety Report 6210169-4 (Version None)
Quarter: 2009Q2

REPORT INFORMATION
  Report Type: 
  Country: None (occurrence: None)
  Receive Date: 20090601
  Receipt Date: 20090527
  Transmission Date: 20091009
  Serious: Yes (Hospitalization)
  Sender: FDA-Public Use
  Company Number: FR-JNJFOC-20090506185

PATIENT
  Age: 34 Year
  Sex: Female

DRUGS (1)
  1. RISPERDAL [Suspect]
     Indication: DELIRIUM
     Dosage: 4MG TO 8 MG
     Route: 048

REACTIONS (2)
  - LEUKOPENIA [None]
  - NEUTROPENIA [None]
